FAERS Safety Report 11267050 (Version 2)
Quarter: 2015Q3

REPORT INFORMATION
  Report Type: Spontaneous
  Country: DE (occurrence: DE)
  Receive Date: 20150713
  Receipt Date: 20150915
  Transmission Date: 20151125
  Serious: Yes (Other)
  Sender: FDA-Public Use
  Company Number: DE-PFIZER INC-2015036098

PATIENT
  Age: 69 Year
  Sex: Male

DRUGS (2)
  1. BEZAFIBRATE [Concomitant]
     Active Substance: BEZAFIBRATE
     Dosage: UNK, 1X/DAY
     Dates: start: 1994
  2. SILDENAFIL PFIZER [Suspect]
     Active Substance: SILDENAFIL
     Indication: ERECTILE DYSFUNCTION
     Dosage: 50 MG, TWO TABLETS PER WEEK
     Dates: start: 201307, end: 201309

REACTIONS (7)
  - Hyperhidrosis [Recovered/Resolved]
  - Palpitations [Recovering/Resolving]
  - Dizziness [Recovered/Resolved]
  - Thrombosis [Recovered/Resolved]
  - Pulmonary embolism [Recovered/Resolved]
  - Headache [Recovering/Resolving]
  - Drug ineffective [Unknown]

NARRATIVE: CASE EVENT DATE: 201309
